FAERS Safety Report 18110889 (Version 1)
Quarter: 2020Q3

REPORT INFORMATION
  Report Type: Spontaneous
  Country: US (occurrence: US)
  Receive Date: 20200804
  Receipt Date: 20200804
  Transmission Date: 20201103
  Serious: No
  Sender: FDA-Public Use
  Company Number: US-JNJFOC-20200742707

PATIENT
  Age: 40 Year
  Sex: Female
  Weight: 68.1 kg

DRUGS (6)
  1. REMODULIN [Suspect]
     Active Substance: TREPROSTINIL
     Route: 058
  2. OPSUMIT [Concomitant]
     Active Substance: MACITENTAN
     Route: 065
  3. SILDENAFIL CITRATE. [Concomitant]
     Active Substance: SILDENAFIL CITRATE
     Route: 065
  4. XARELTO [Suspect]
     Active Substance: RIVAROXABAN
     Indication: PRODUCT USED FOR UNKNOWN INDICATION
     Route: 048
  5. REMODULIN [Suspect]
     Active Substance: TREPROSTINIL
     Route: 058
  6. REMODULIN [Suspect]
     Active Substance: TREPROSTINIL
     Indication: PULMONARY ARTERIAL HYPERTENSION
     Dosage: 10.0 MG/ML
     Route: 058
     Dates: start: 20181025

REACTIONS (13)
  - Infusion site rash [Recovering/Resolving]
  - Infusion site discolouration [Unknown]
  - Infusion site nodule [Unknown]
  - Infusion site erythema [Recovered/Resolved]
  - Dizziness [Recovered/Resolved]
  - Headache [Recovered/Resolved]
  - Diarrhoea [Recovered/Resolved]
  - Infusion site pain [Unknown]
  - Infusion site haemorrhage [Unknown]
  - Infusion site extravasation [Unknown]
  - Infusion site warmth [Unknown]
  - Infusion site pruritus [Recovered/Resolved]
  - Incorrect dose administered [Unknown]

NARRATIVE: CASE EVENT DATE: 20200508
